FAERS Safety Report 16087653 (Version 2)
Quarter: 2025Q4

REPORT INFORMATION
  Report Type: Spontaneous
  Country: EU (occurrence: EU)
  Receive Date: 20190319
  Receipt Date: 20251004
  Transmission Date: 20260117
  Serious: Yes (Disabling, Other)
  Sender: AUROBINDO
  Company Number: EU-AUROBINDO-AUR-APL-2019-013996

PATIENT
  Age: 27 Year
  Sex: Female

DRUGS (1)
  1. ESCITALOPRAM OXALATE [Suspect]
     Active Substance: ESCITALOPRAM OXALATE
     Indication: Anxiety
     Dosage: 20 MILLIGRAM
     Route: 065

REACTIONS (3)
  - Drug hypersensitivity [Unknown]
  - Stiff person syndrome [Recovering/Resolving]
  - Condition aggravated [Recovered/Resolved]
